FAERS Safety Report 8268916-6 (Version None)
Quarter: 2012Q2

REPORT INFORMATION
  Report Type: 
  Country: None (occurrence: None)
  Receive Date: 20120409
  Receipt Date: 20120329
  Transmission Date: 20120825
  Serious: Yes (Hospitalization)
  Sender: FDA-Public Use
  Company Number: CA-JNJFOC-20120315239

PATIENT
  Sex: Male
  Weight: 87.8 kg

DRUGS (3)
  1. IMURAN [Concomitant]
     Dosage: 2 TABLET PO OD
     Route: 048
  2. REMICADE [Suspect]
     Indication: CROHN'S DISEASE
     Dosage: 8TH INFUSION
     Route: 042
     Dates: start: 20120203
  3. REMICADE [Suspect]
     Route: 042
     Dates: start: 20110228

REACTIONS (3)
  - COUGH [None]
  - CHEST PAIN [None]
  - FIBRIN D DIMER INCREASED [None]
